FAERS Safety Report 10166915 (Version 1)
Quarter: 2014Q2

REPORT INFORMATION
  Report Type: Spontaneous
  Country: US (occurrence: None)
  Receive Date: 20140509
  Receipt Date: 20140509
  Transmission Date: 20141212
  Serious: Yes (Hospitalization)
  Sender: FDA-Public Use
  Company Number: None

PATIENT
  Age: 49 Year
  Sex: Female

DRUGS (2)
  1. HYDROCHLOROQUINE [Suspect]
     Indication: CONNECTIVE TISSUE DISORDER
     Route: 048
     Dates: start: 20140331, end: 20140505
  2. HYDROCHLOROQUINE [Suspect]
     Indication: AUTOIMMUNE DISORDER
     Route: 048
     Dates: start: 20140331, end: 20140505

REACTIONS (10)
  - Gastrointestinal pain [None]
  - Decreased appetite [None]
  - Weight decreased [None]
  - Contusion [None]
  - Diarrhoea [None]
  - Vomiting [None]
  - Muscular weakness [None]
  - Musculoskeletal stiffness [None]
  - Balance disorder [None]
  - Dizziness [None]
